FAERS Safety Report 8867015 (Version 1)
Quarter: 2012Q4

REPORT INFORMATION
  Report Type: 
  Country: US (occurrence: US)
  Receive Date: 20121025
  Receipt Date: 20121025
  Transmission Date: 20130627
  Serious: Yes (Hospitalization)
  Sender: FDA-Public Use
  Company Number: US-AMGEN-USASP2012014177

PATIENT
  Sex: Male
  Weight: 156.46 kg

DRUGS (8)
  1. ENBREL [Suspect]
     Indication: PRODUCT USED FOR UNKNOWN INDICATION
     Dosage: 50 mg, qwk
  2. METHOTREXATE [Concomitant]
     Dosage: 2.5 mg, UNK
  3. FOLIC ACID [Concomitant]
     Dosage: 5 mg, UNK
  4. ETODOLAC [Concomitant]
     Dosage: 400 mg, UNK
  5. CENTRUM SILVER                     /01292501/ [Concomitant]
     Dosage: UNK
  6. VITAMIN C                          /00008001/ [Concomitant]
     Dosage: 500 mg, UNK
  7. VITAMIN E                          /00110501/ [Concomitant]
     Dosage: 1000 IU, UNK
  8. PREVACID [Concomitant]
     Dosage: 30 mg, UNK

REACTIONS (4)
  - Arthritis infective [Unknown]
  - Arthralgia [Unknown]
  - Back pain [Unknown]
  - Joint effusion [Unknown]
